FAERS Safety Report 7091628-1 (Version None)
Quarter: 2010Q4

REPORT INFORMATION
  Report Type: 
  Country: None (occurrence: None)
  Receive Date: 20101109
  Receipt Date: 20090714
  Transmission Date: 20110411
  Serious: No
  Sender: FDA-Public Use
  Company Number: US-KINGPHARMUSA00001-K200900840

PATIENT
  Age: 47 Year
  Sex: Male
  Weight: 83.9 kg

DRUGS (4)
  1. FLECTOR [Suspect]
     Indication: BACK PAIN
     Dosage: 1 PATCH, UNK
     Route: 061
     Dates: start: 20090615, end: 20090615
  2. METHADONE [Concomitant]
     Indication: BACK PAIN
     Dosage: 3-4 TABLETS QD
  3. PERCOCET [Concomitant]
     Indication: BACK PAIN
     Dosage: 10/325 MG, BID
  4. FLEXERIL [Concomitant]
     Indication: MUSCLE RELAXANT THERAPY
     Dosage: 3-4 ^PILLS^ QD

REACTIONS (2)
  - BLOOD PRESSURE INCREASED [None]
  - FEELING ABNORMAL [None]
